FAERS Safety Report 5030998-2 (Version None)
Quarter: 2006Q2

REPORT INFORMATION
  Report Type: 
  Country: None (occurrence: None)
  Receive Date: 20060621
  Receipt Date: 20060328
  Transmission Date: 20061013
  Serious: No
  Sender: FDA-Public Use
  Company Number: US-GLAXOSMITHKLINE-A0599372A

PATIENT
  Age: 55 Year
  Sex: Female

DRUGS (7)
  1. FLOVENT [Suspect]
     Indication: CHRONIC OBSTRUCTIVE PULMONARY DISEASE
     Dosage: 1PUFF TWICE PER DAY
     Route: 055
  2. IBUPROFEN [Concomitant]
  3. DILTIAZEM [Concomitant]
  4. LORAZEPAM [Concomitant]
  5. LEXAPRO [Concomitant]
  6. ALBUTEROL [Concomitant]
  7. SPIRIVA [Concomitant]

REACTIONS (2)
  - GINGIVAL PAIN [None]
  - LOOSE TOOTH [None]
